FAERS Safety Report 6831636-6 (Version None)
Quarter: 2010Q3

REPORT INFORMATION
  Report Type: 
  Country: None (occurrence: None)
  Receive Date: 20100712
  Receipt Date: 20100707
  Transmission Date: 20110219
  Serious: Yes (Death, Hospitalization, Other)
  Sender: FDA-Public Use
  Company Number: PHHY2010DE44398

PATIENT
  Sex: Female
  Weight: 76 kg

DRUGS (6)
  1. CGS 20267 T30748+ [Suspect]
     Indication: BREAST CANCER
     Dosage: 2.5 MG DAILY
     Route: 048
     Dates: end: 20100228
  2. LEVOTHYROXINE SODIUM [Concomitant]
     Dosage: 1 DF, QD
     Dates: start: 19800101
  3. CARVEDILOL [Concomitant]
     Dosage: 1 DF, BID
  4. FORZAAR [Concomitant]
     Dosage: 1 DF, QD
  5. XALATAN [Concomitant]
     Dosage: UNK
     Route: 061
     Dates: start: 20090801
  6. LIMPTAR [Concomitant]

REACTIONS (10)
  - BLOOD PRESSURE INADEQUATELY CONTROLLED [None]
  - BONE PAIN [None]
  - CARDIAC FAILURE [None]
  - CORONARY ARTERY DISEASE [None]
  - DEATH [None]
  - DEPRESSED MOOD [None]
  - DIABETES MELLITUS INADEQUATE CONTROL [None]
  - DYSPNOEA [None]
  - FATIGUE [None]
  - PNEUMONIA [None]
